FAERS Safety Report 17995847 (Version 1)
Quarter: 2020Q3

REPORT INFORMATION
  Report Type: Report from Study
  Country: IT (occurrence: IT)
  Receive Date: 20200708
  Receipt Date: 20200708
  Transmission Date: 20201103
  Serious: Yes (Hospitalization)
  Sender: FDA-Public Use
  Company Number: IT-TEVA-2020-IT-1797970

PATIENT
  Age: 87 Year
  Sex: Female

DRUGS (11)
  1. CLENIL [Concomitant]
     Active Substance: BECLOMETHASONE DIPROPIONATE
  2. PRADAXA 75MG HARD CAPSULES [Concomitant]
     Dosage: 110 MG
  3. OXYGEN. [Concomitant]
     Active Substance: OXYGEN
  4. BISOPROLOL FUMARATE. [Concomitant]
     Active Substance: BISOPROLOL FUMARATE
     Dosage: 5 MG
  5. LEVOFLOXACIN. [Suspect]
     Active Substance: LEVOFLOXACIN
     Indication: SKIN ULCER
     Dosage: 750 MG
     Route: 048
     Dates: start: 20200508, end: 20200512
  6. INSULINA LISPRO SANOFI [Concomitant]
     Dosage: 3000 KU
  7. SIVASTIN [Concomitant]
     Active Substance: SIMVASTATIN
     Dosage: 20 MG
  8. FUROSEMIDE. [Concomitant]
     Active Substance: FUROSEMIDE
     Dosage: 50 MG
  9. LYRICA [Concomitant]
     Active Substance: PREGABALIN
     Dosage: 50 MG
  10. PARACETAMOL [Concomitant]
     Active Substance: ACETAMINOPHEN
     Dosage: 1 GRAM
  11. TOUJEO [Concomitant]
     Active Substance: INSULIN GLARGINE
     Dosage: 16 IU

REACTIONS (2)
  - Diarrhoea [Unknown]
  - Dehydration [Unknown]

NARRATIVE: CASE EVENT DATE: 20200519
